FAERS Safety Report 13634464 (Version 1)
Quarter: 2017Q2

REPORT INFORMATION
  Report Type: Report from Study
  Country: JP (occurrence: JP)
  Receive Date: 20170609
  Receipt Date: 20170609
  Transmission Date: 20170830
  Serious: Yes (Other)
  Sender: FDA-Public Use
  Company Number: JP-ROCHE-1941735

PATIENT

DRUGS (3)
  1. CAPECITABINE. [Suspect]
     Active Substance: CAPECITABINE
     Indication: COLORECTAL CANCER
     Dosage: FOR 2 WEEKS OF A 3-WEEK CYCLE.
     Route: 048
  2. BEVACIZUMAB [Suspect]
     Active Substance: BEVACIZUMAB
     Indication: COLORECTAL CANCER
     Dosage: AS A 30-90-MIN INFUSION ON DAY 1 OF THE 3-WEEK CYCLE.
     Route: 042
  3. IRINOTECAN [Suspect]
     Active Substance: IRINOTECAN
     Indication: COLORECTAL CANCER
     Dosage: ON DAY 1.
     Route: 042

REACTIONS (17)
  - Diarrhoea [Unknown]
  - Nausea [Unknown]
  - Vomiting [Unknown]
  - Leukopenia [Unknown]
  - Embolism [Unknown]
  - Thrombocytopenia [Unknown]
  - Aspartate aminotransferase increased [Unknown]
  - Blood alkaline phosphatase increased [Unknown]
  - Febrile neutropenia [Unknown]
  - Decreased appetite [Unknown]
  - Alanine aminotransferase increased [Unknown]
  - Blood creatinine increased [Unknown]
  - Hypertension [Unknown]
  - Gastrointestinal perforation [Unknown]
  - Anaemia [Unknown]
  - Gastrointestinal haemorrhage [Unknown]
  - Neutropenia [Unknown]
